FAERS Safety Report 11999101 (Version 5)
Quarter: 2024Q3

REPORT INFORMATION
  Report Type: Spontaneous
  Country: FR (occurrence: FR)
  Receive Date: 20160204
  Receipt Date: 20240930
  Transmission Date: 20241016
  Serious: Yes (Hospitalization, Other)
  Sender: MERCK
  Company Number: None

PATIENT
  Age: 16 Year
  Sex: Male
  Weight: 58.3 kg

DRUGS (7)
  1. EMEND [Interacting]
     Active Substance: APREPITANT
     Dosage: UNK
     Route: 048
     Dates: start: 20151209
  2. FLUOROURACIL [Interacting]
     Active Substance: FLUOROURACIL
     Indication: Nasopharyngeal cancer
     Dosage: 1ST CYCLE
     Route: 041
     Dates: start: 20151210, end: 20160111
  3. FLUOROURACIL [Interacting]
     Active Substance: FLUOROURACIL
     Dosage: 2ND CYCLE
     Dates: start: 20160104, end: 20160111
  4. SOLU-MEDROL [Suspect]
     Active Substance: METHYLPREDNISOLONE SODIUM SUCCINATE
     Dosage: UNK
     Route: 041
     Dates: start: 20151209, end: 20151209
  5. CISPLATIN [Suspect]
     Active Substance: CISPLATIN
     Dosage: UNK
     Route: 041
     Dates: start: 20151209, end: 20151209
  6. ONDANSETRON [Interacting]
     Active Substance: ONDANSETRON
     Dosage: UNK
     Dates: start: 20151209
  7. ALIZAPRIDE HYDROCHLORIDE [Suspect]
     Active Substance: ALIZAPRIDE HYDROCHLORIDE
     Dosage: UNK
     Dates: start: 20151209

REACTIONS (3)
  - Hyperammonaemic encephalopathy [Recovered/Resolved]
  - Hyperammonaemia [Not Recovered/Not Resolved]
  - Drug interaction [Unknown]

NARRATIVE: CASE EVENT DATE: 20151214
